FAERS Safety Report 8938988 (Version 1)
Quarter: 2012Q4

REPORT INFORMATION
  Report Type: 
  Country: US (occurrence: US)
  Receive Date: 20121203
  Receipt Date: 20121203
  Transmission Date: 20130627
  Serious: Yes (Hospitalization)
  Sender: FDA-Public Use
  Company Number: US-BAYER-2012-125672

PATIENT
  Age: 42 Year
  Sex: Female

DRUGS (2)
  1. YAZ [Suspect]
  2. ALBUTEROL [Concomitant]
     Indication: ASTHMA

REACTIONS (2)
  - Pulmonary embolism [Recovered/Resolved]
  - Deep vein thrombosis [Recovered/Resolved]
